FAERS Safety Report 19541872 (Version 3)
Quarter: 2021Q3

REPORT INFORMATION
  Report Type: Spontaneous
  Country: US (occurrence: US)
  Receive Date: 20210713
  Receipt Date: 20210729
  Transmission Date: 20211014
  Serious: Yes (Other)
  Sender: FDA-Public Use
  Company Number: US-ORGANON-O2107USA000747

PATIENT
  Age: 21 Year
  Sex: Female
  Weight: 61.69 kg

DRUGS (2)
  1. NEXPLANON [Suspect]
     Active Substance: ETONOGESTREL
     Indication: CONTRACEPTION
     Dosage: 1 ROD, IN LEFT ARM, EVERY 3 YEAR
     Route: 059
     Dates: start: 20210603
  2. NEXPLANON [Suspect]
     Active Substance: ETONOGESTREL
     Indication: MENSTRUATION IRREGULAR

REACTIONS (5)
  - Device dislocation [Not Recovered/Not Resolved]
  - Pain in extremity [Recovered/Resolved]
  - Complication associated with device [Recovered/Resolved]
  - Discomfort [Recovered/Resolved]
  - Product use in unapproved indication [Unknown]

NARRATIVE: CASE EVENT DATE: 2021
